FAERS Safety Report 10770720 (Version 1)
Quarter: 2015Q1

REPORT INFORMATION
  Report Type: Spontaneous
  Country: US (occurrence: None)
  Receive Date: 20150206
  Receipt Date: 20150206
  Transmission Date: 20150721
  Serious: No
  Sender: FDA-Public Use
  Company Number: HYP201403-000022

PATIENT
  Age: 14 Year
  Sex: Male

DRUGS (5)
  1. CARBAGLU [Concomitant]
     Active Substance: CARGLUMIC ACID
  2. RAVICTI [Suspect]
     Active Substance: GLYCEROL PHENYLBUTYRATE
     Indication: UREA CYCLE ENZYME DEFICIENCY
     Route: 048
     Dates: start: 201401, end: 20140326
  3. VITAMIN B1 [Concomitant]
     Active Substance: THIAMINE HYDROCHLORIDE
  4. CALCIUM [Concomitant]
     Active Substance: CALCIUM
  5. CARNITINE [Concomitant]
     Active Substance: CARNITINE

REACTIONS (1)
  - Rash [None]

NARRATIVE: CASE EVENT DATE: 201403
